FAERS Safety Report 6290816-1 (Version None)
Quarter: 2009Q3

REPORT INFORMATION
  Report Type: 
  Country: None (occurrence: None)
  Receive Date: 20090730
  Receipt Date: 20090717
  Transmission Date: 20100115
  Serious: Yes (Disabling, Other)
  Sender: FDA-Public Use
  Company Number: US-PURDUE-USA-2009-0036840

PATIENT
  Sex: Female
  Weight: 58.957 kg

DRUGS (3)
  1. DILAUDID [Suspect]
     Indication: PAIN
     Dosage: 4 MG, SEE TEXT
     Route: 048
     Dates: start: 20000101
  2. PEPCID [Concomitant]
     Indication: ABDOMINAL DISCOMFORT
     Dosage: 1 TABLET, PRN
     Route: 048
  3. PREVACID [Concomitant]
     Dosage: 20 MG, UNK

REACTIONS (27)
  - ABDOMINAL PAIN UPPER [None]
  - BLADDER SPASM [None]
  - BURNING SENSATION [None]
  - CEREBROVASCULAR ACCIDENT [None]
  - DRUG DEPENDENCE [None]
  - DRUG INEFFECTIVE [None]
  - DRUG WITHDRAWAL SYNDROME [None]
  - DYSURIA [None]
  - EYE PAIN [None]
  - FEELING ABNORMAL [None]
  - FEELING OF BODY TEMPERATURE CHANGE [None]
  - GAIT DISTURBANCE [None]
  - GASTROINTESTINAL PAIN [None]
  - HEADACHE [None]
  - MALAISE [None]
  - METABOLIC DISORDER [None]
  - MUSCLE SPASMS [None]
  - NASAL CONGESTION [None]
  - NERVOUS SYSTEM DISORDER [None]
  - OESOPHAGEAL PAIN [None]
  - ORAL DISCOMFORT [None]
  - PERIPHERAL COLDNESS [None]
  - PRODUCT FRIABLE [None]
  - SUDDEN ONSET OF SLEEP [None]
  - THROAT IRRITATION [None]
  - UNEVALUABLE EVENT [None]
  - VISUAL IMPAIRMENT [None]
